FAERS Safety Report 12315930 (Version 3)
Quarter: 2016Q3

REPORT INFORMATION
  Report Type: Report from Study
  Country: AT (occurrence: AT)
  Receive Date: 20160428
  Receipt Date: 20160720
  Transmission Date: 20161109
  Serious: Yes (Death, Other)
  Sender: FDA-Public Use
  Company Number: AT-BRISTOL-MYERS SQUIBB COMPANY-BMS-2016-032256

PATIENT
  Age: 66 Year
  Sex: Female

DRUGS (2)
  1. DACLATASVIR DIHYDROCHLORIDE [Suspect]
     Active Substance: DACLATASVIR DIHYDROCHLORIDE
     Indication: HEPATITIS C
     Route: 065
  2. SOFOSBUVIR [Suspect]
     Active Substance: SOFOSBUVIR
     Indication: HEPATITIS C
     Route: 065

REACTIONS (1)
  - Hepatocellular carcinoma [Fatal]
